FAERS Safety Report 6408891-X (Version None)
Quarter: 2009Q4

REPORT INFORMATION
  Report Type: 
  Country: None (occurrence: None)
  Receive Date: 20091021
  Receipt Date: 20091015
  Transmission Date: 20100525
  Serious: Yes (Other)
  Sender: FDA-Public Use
  Company Number: JP-MERCK-0910USA00509

PATIENT
  Age: 82 Year
  Sex: Female

DRUGS (2)
  1. COZAAR [Suspect]
     Route: 048
     Dates: start: 20060501, end: 20080501
  2. LIVALO [Suspect]
     Indication: DYSLIPIDAEMIA
     Route: 048

REACTIONS (1)
  - RHABDOMYOLYSIS [None]
